FAERS Safety Report 6715708-2 (Version None)
Quarter: 2010Q2

REPORT INFORMATION
  Report Type: 
  Country: None (occurrence: None)
  Receive Date: 20100507
  Receipt Date: 20100503
  Transmission Date: 20101027
  Serious: Yes (Other)
  Sender: FDA-Public Use
  Company Number: GR-ROCHE-701420

PATIENT
  Age: 4 Year
  Sex: Female

DRUGS (3)
  1. CEFTRIAXONE SODIUM [Suspect]
     Indication: LOBAR PNEUMONIA
     Route: 042
  2. AMOXICILLIN AND CLAVULANATE POTASSIUM [Concomitant]
     Indication: LOBAR PNEUMONIA
     Route: 042
  3. VANCOMYCIN HCL [Concomitant]
     Indication: LOBAR PNEUMONIA
     Route: 042

REACTIONS (1)
  - DRUG RASH WITH EOSINOPHILIA AND SYSTEMIC SYMPTOMS [None]
